FAERS Safety Report 13452078 (Version 1)
Quarter: 2017Q2

REPORT INFORMATION
  Report Type: Spontaneous
  Country: IT (occurrence: IT)
  Receive Date: 20170418
  Receipt Date: 20170418
  Transmission Date: 20170830
  Serious: Yes (Other)
  Sender: FDA-Public Use
  Company Number: IT-BRISTOL-MYERS SQUIBB COMPANY-BMS-2017-031696

PATIENT
  Age: 84 Year
  Sex: Male

DRUGS (2)
  1. ELIQUIS [Suspect]
     Active Substance: APIXABAN
     Indication: CEREBROVASCULAR ACCIDENT PROPHYLAXIS
     Dosage: 5 MG, DAILY
     Route: 048
     Dates: end: 20170408
  2. BISOPROLOL HEMIFUMARATE [Concomitant]
     Active Substance: BISOPROLOL FUMARATE
     Indication: ULCER HAEMORRHAGE
     Dosage: 2.5 MG, UNK
     Route: 048

REACTIONS (4)
  - Asthenia [Recovering/Resolving]
  - Melaena [Recovering/Resolving]
  - Haemoglobin decreased [Recovering/Resolving]
  - Packed red blood cell transfusion [Unknown]

NARRATIVE: CASE EVENT DATE: 20170409
